FAERS Safety Report 12715221 (Version 2)
Quarter: 2016Q4

REPORT INFORMATION
  Report Type: Spontaneous
  Country: JP (occurrence: JP)
  Receive Date: 20160906
  Receipt Date: 20161012
  Transmission Date: 20170207
  Serious: Yes (Hospitalization, Disabling)
  Sender: FDA-Public Use
  Company Number: JP-UCBSA-2016033001

PATIENT
  Age: 73 Year
  Sex: Female
  Weight: 51.7 kg

DRUGS (13)
  1. BAYASPIRIN [Concomitant]
     Active Substance: ASPIRIN
     Indication: CEREBRAL INFARCTION
     Dosage: 100 MG, ONCE DAILY (QD)
  2. SIGMART [Concomitant]
     Active Substance: NICORANDIL
     Indication: ANGINA PECTORIS
     Dosage: 5 MG, 2X/DAY (BID)
  3. ACARBOSE. [Concomitant]
     Active Substance: ACARBOSE
     Indication: ANAPLASTIC THYROID CANCER
     Dosage: 250 MG, ONCE DAILY (QD)
  4. SALIGREN [Concomitant]
     Indication: SJOGREN^S SYNDROME
     Dosage: 30 MG, 2X/DAY (BID)
     Dates: start: 20140407
  5. PARIET [Concomitant]
     Active Substance: RABEPRAZOLE SODIUM
     Indication: GASTRITIS
     Dosage: 10 MG, ONCE DAILY (QD)
  6. MICARDIS [Concomitant]
     Active Substance: TELMISARTAN
     Indication: HYPERTENSION
     Dosage: 40 MG, ONCE DAILY (QD)
  7. CIMZIA [Suspect]
     Active Substance: CERTOLIZUMAB PEGOL
     Indication: RHEUMATOID ARTHRITIS
     Dosage: 200 MG, MONTHLY (QM)
     Route: 058
     Dates: start: 20130708, end: 20160509
  8. NIFEDIPINE. [Concomitant]
     Active Substance: NIFEDIPINE
     Indication: HYPERTENSION
     Dosage: 40 MG, ONCE DAILY (QD)
  9. RHEUMATREX [Concomitant]
     Active Substance: METHOTREXATE SODIUM
     Indication: RHEUMATOID ARTHRITIS
     Dosage: 6 MG, 2X/DAY (BID)
     Dates: start: 20121022, end: 20160509
  10. LIVALO [Concomitant]
     Active Substance: PITAVASTATIN CALCIUM
     Indication: HYPERLIPIDAEMIA
     Dosage: 1 MG, ONCE DAILY (QD)
  11. INSULIN LISPRO [Concomitant]
     Active Substance: INSULIN LISPRO
     Indication: DIABETES MELLITUS
  12. FOLIAMIN [Concomitant]
     Active Substance: FOLIC ACID
     Indication: RHEUMATOID ARTHRITIS
     Dosage: 5 MG, ONCE DAILY (QD)
     Dates: start: 20160204, end: 20160509
  13. CELECOX [Concomitant]
     Active Substance: CELECOXIB
     Indication: RHEUMATOID ARTHRITIS
     Dosage: 200 MG, ONCE DAILY (QD)
     Dates: start: 20120611

REACTIONS (1)
  - Anaplastic thyroid cancer [Recovered/Resolved with Sequelae]

NARRATIVE: CASE EVENT DATE: 20160303
